FAERS Safety Report 24564885 (Version 1)
Quarter: 2024Q4

REPORT INFORMATION
  Report Type: Spontaneous
  Country: SI (occurrence: SI)
  Receive Date: 20241030
  Receipt Date: 20241030
  Transmission Date: 20250115
  Serious: Yes (Other)
  Sender: BAXTER
  Company Number: SI-JNJFOC-20241008572

PATIENT
  Age: 61 Year

DRUGS (8)
  1. DOXORUBICIN [Suspect]
     Active Substance: DOXORUBICIN
     Indication: Chronic lymphocytic leukaemia
     Dosage: UNK,(DOSAGE FORM:UNKNOWN) AS A PART OF R-CHOP REGIMEN CHEMOTHERAPY
     Route: 050
  2. CYCLOPHOSPHAMIDE [Suspect]
     Active Substance: CYCLOPHOSPHAMIDE
     Indication: Chronic lymphocytic leukaemia
     Dosage: UNK,(DOSAGE FORM:UNKNOWN) AS A PART OF R-CHOP REGIMEN CHEMOTHERAPY
     Route: 050
  3. VINCRISTINE SULFATE [Suspect]
     Active Substance: VINCRISTINE SULFATE
     Indication: Chronic lymphocytic leukaemia
     Dosage: UNK, AS A PART OF R-CHOP REGIMEN CHEMOTHERAPY
     Route: 050
  4. PREDNISONE [Suspect]
     Active Substance: PREDNISONE
     Indication: Chronic lymphocytic leukaemia
     Dosage: UNK, AS A PART OF R-CHOP REGIMEN CHEMOTHERAPY
     Route: 050
  5. RITUXIMAB [Suspect]
     Active Substance: RITUXIMAB
     Indication: Chronic lymphocytic leukaemia
     Dosage: UNK, AS A PART OF R-CHOP REGIMEN CHEMOTHERAPY
     Route: 050
  6. IMBRUVICA [Suspect]
     Active Substance: IBRUTINIB
     Indication: Chronic lymphocytic leukaemia
     Dosage: UNK, START DATE: 2021, STOP DATE:2022
     Route: 048
  7. VENETOCLAX [Suspect]
     Active Substance: VENETOCLAX
     Indication: Chronic lymphocytic leukaemia
     Dosage: UNK
     Route: 050
  8. POTASSIUM HYDROXIDE [Concomitant]
     Active Substance: POTASSIUM HYDROXIDE
     Dosage: UNK, START DATE: JUL-2022, STOP DATE: SEP-2022
     Route: 065

REACTIONS (5)
  - Atrial fibrillation [Unknown]
  - Pancytopenia [Unknown]
  - Thrombocytopenia [Unknown]
  - Pyrexia [Unknown]
  - Hyperhidrosis [Unknown]
